FAERS Safety Report 8436081-8 (Version None)
Quarter: 2012Q2

REPORT INFORMATION
  Report Type: 
  Country: None (occurrence: None)
  Receive Date: 20120614
  Receipt Date: 20120611
  Transmission Date: 20120825
  Serious: Yes (Death, Hospitalization)
  Sender: FDA-Public Use
  Company Number: US-B.I. PHARMACEUTICALS,INC./RIDGEFIELD-2012-BP-07036BP

PATIENT
  Sex: Male
  Weight: 83.01 kg

DRUGS (20)
  1. ZOCOR [Concomitant]
     Dosage: 40 MG
     Route: 048
  2. NIACIN [Concomitant]
     Dosage: 2500 MG
     Route: 048
     Dates: start: 20120327
  3. POTASSIUM CHLORIDE [Concomitant]
     Dosage: 60 MG
     Route: 048
  4. ALLOPURINOL [Concomitant]
     Dosage: 300 MG
     Route: 048
  5. MIDAZOLAM [Concomitant]
  6. PANTOPRAZOLE [Concomitant]
  7. ASCORBIC ACID [Concomitant]
     Dosage: 500 MG
  8. VITAMIN E [Concomitant]
     Dosage: 400 U
  9. PEPCID AC [Concomitant]
     Dates: start: 20111208
  10. DESMOPRESSIN ACETATE [Concomitant]
  11. IMDUR [Concomitant]
     Dosage: 60 MG
  12. COREG [Concomitant]
     Dosage: 50 MG
     Route: 048
     Dates: start: 20120119
  13. LEUCOVORIN CALCIUM [Concomitant]
     Dosage: 1 MG
     Route: 048
  14. LASIX [Concomitant]
     Dosage: 160 MG
     Route: 048
  15. KLOR-CON [Concomitant]
  16. ONDANSETRON [Concomitant]
  17. PRADAXA [Suspect]
     Indication: ATRIAL FIBRILLATION
     Dosage: 300 MG
     Dates: start: 20070720
  18. VITAMIN B6 [Concomitant]
     Dosage: 50 MG
  19. NITROGLYCERIN [Concomitant]
     Indication: CHEST PAIN
     Route: 060
  20. FENTANYL [Concomitant]

REACTIONS (5)
  - UPPER GASTROINTESTINAL HAEMORRHAGE [None]
  - HAEMORRHAGE [None]
  - RENAL FAILURE ACUTE [None]
  - EPIGASTRIC DISCOMFORT [None]
  - HAEMORRHAGE INTRACRANIAL [None]
